FAERS Safety Report 21705273 (Version 1)
Quarter: 2022Q4

REPORT INFORMATION
  Report Type: Spontaneous
  Country: US (occurrence: None)
  Receive Date: 20221208
  Receipt Date: 20221208
  Transmission Date: 20230112
  Serious: Yes (Hospitalization)
  Sender: FDA-Public Use
  Company Number: None

PATIENT
  Sex: Female

DRUGS (1)
  1. OPSUMIT [Suspect]
     Active Substance: MACITENTAN
     Indication: Pulmonary arterial hypertension
     Dosage: FREQUENCY : DAILY;?
     Route: 048
     Dates: start: 20221122

REACTIONS (9)
  - Haemoglobin decreased [None]
  - Ulcer haemorrhage [None]
  - Blood creatinine increased [None]
  - Fluid retention [None]
  - Skin warm [None]
  - Dry skin [None]
  - Skin discolouration [None]
  - Hypotension [None]
  - Dyspnoea exertional [None]
